FAERS Safety Report 10267465 (Version 1)
Quarter: 2014Q2

REPORT INFORMATION
  Report Type: Spontaneous
  Country: IT (occurrence: IT)
  Receive Date: 20140630
  Receipt Date: 20140630
  Transmission Date: 20141212
  Serious: Yes (Life-Threatening)
  Sender: FDA-Public Use
  Company Number: IT-BAYER-2014-093836

PATIENT
  Age: 67 Year
  Sex: Male

DRUGS (4)
  1. CARDIOASPIRIN [Suspect]
     Dosage: DAILY DOSE 100 MG
     Route: 048
     Dates: start: 20140202, end: 20140228
  2. PLAVIX [Suspect]
     Dosage: 1 DF, QD
     Route: 048
     Dates: start: 20140202, end: 20140228
  3. ALFUZOSIN [Concomitant]
     Dosage: UNK
     Route: 048
  4. TRIATEC [Concomitant]
     Dosage: UNK
     Route: 048

REACTIONS (4)
  - Pain [Recovered/Resolved]
  - Rash [Recovered/Resolved]
  - Hypersensitivity [Recovered/Resolved]
  - Dyspnoea [Recovered/Resolved]
